FAERS Safety Report 20136913 (Version 2)
Quarter: 2021Q4

REPORT INFORMATION
  Report Type: Spontaneous
  Country: US (occurrence: US)
  Receive Date: 20211201
  Receipt Date: 20211207
  Transmission Date: 20220303
  Serious: Yes (Death)
  Sender: FDA-Public Use
  Company Number: US-TG THERAPEUTICS INC.-TGT002259

PATIENT
  Age: 77 Year
  Sex: Male

DRUGS (1)
  1. UKONIQ [Suspect]
     Active Substance: UMBRALISIB TOSYLATE
     Indication: B-cell small lymphocytic lymphoma
     Dosage: 800 MILLIGRAM, QD
     Route: 048

REACTIONS (1)
  - Death [Fatal]

NARRATIVE: CASE EVENT DATE: 20211121
